FAERS Safety Report 9322676 (Version 1)
Quarter: 2013Q2

REPORT INFORMATION
  Report Type: Spontaneous
  Country: PH (occurrence: PH)
  Receive Date: 20130601
  Receipt Date: 20130601
  Transmission Date: 20140414
  Serious: Yes (Hospitalization)
  Sender: FDA-Public Use
  Company Number: PH-BAXTER-2013BAX009095

PATIENT
  Age: 52 Year
  Sex: Male

DRUGS (5)
  1. DIANEAL PD2 WITH 1.5% DEXTROSE [Suspect]
     Indication: PERITONEAL DIALYSIS
     Route: 033
     Dates: start: 201206, end: 20130505
  2. DIANEAL PD2 WITH 4.25% DEXTROSE [Suspect]
     Indication: PERITONEAL DIALYSIS
     Route: 033
     Dates: start: 201206, end: 20130505
  3. TRENTAL [Concomitant]
     Indication: PRODUCT USED FOR UNKNOWN INDICATION
     Route: 065
  4. DIAMICRON [Concomitant]
     Indication: PRODUCT USED FOR UNKNOWN INDICATION
     Route: 065
  5. SIMVASTATIN [Concomitant]
     Indication: PRODUCT USED FOR UNKNOWN INDICATION
     Route: 065

REACTIONS (3)
  - Peritonitis [Recovered/Resolved]
  - Abdominal adhesions [Unknown]
  - Peritoneal disorder [Unknown]
